FAERS Safety Report 15310569 (Version 1)
Quarter: 2018Q3

REPORT INFORMATION
  Report Type: Spontaneous
  Country: JP (occurrence: JP)
  Receive Date: 20180823
  Receipt Date: 20180823
  Transmission Date: 20181010
  Serious: Yes (Other)
  Sender: FDA-Public Use
  Company Number: JP-GLAXOSMITHKLINE-JP2018JPN150720

PATIENT
  Age: 75 Year
  Sex: Female

DRUGS (2)
  1. SAMTIREL [Suspect]
     Active Substance: ATOVAQUONE
     Indication: ANTIFUNGAL PROPHYLAXIS
  2. SAMTIREL [Suspect]
     Active Substance: ATOVAQUONE
     Indication: PNEUMOCYSTIS JIROVECII PNEUMONIA
     Dosage: 1 DF, BID, AFTER MEAL
     Route: 048
     Dates: start: 20180725

REACTIONS (4)
  - Hypophagia [Unknown]
  - Inappropriate schedule of drug administration [Unknown]
  - Small intestinal haemorrhage [Unknown]
  - Product use issue [Unknown]
